FAERS Safety Report 6606483-0 (Version None)
Quarter: 2010Q1

REPORT INFORMATION
  Report Type: 
  Country: None (occurrence: None)
  Receive Date: 20100226
  Receipt Date: 20100216
  Transmission Date: 20100710
  Serious: Yes (Hospitalization)
  Sender: FDA-Public Use
  Company Number: PHHY2010JP09539

PATIENT
  Age: 70 Year
  Sex: Male

DRUGS (2)
  1. DIOVAN [Suspect]
     Indication: HYPERTENSION
     Dosage: 80 MG, QD
     Route: 048
     Dates: start: 20091201, end: 20100201
  2. RILUTEK [Concomitant]
     Dosage: UNK
     Route: 048
     Dates: start: 20080401, end: 20100201

REACTIONS (1)
  - HYPONATRAEMIA [None]
